FAERS Safety Report 6018402-9 (Version None)
Quarter: 2008Q4

REPORT INFORMATION
  Report Type: 
  Country: None (occurrence: None)
  Receive Date: 20081223
  Receipt Date: 20081215
  Transmission Date: 20090506
  Serious: Yes (Other)
  Sender: FDA-Public Use
  Company Number: PT-AMGEN-US293907

PATIENT
  Sex: Male

DRUGS (1)
  1. ENBREL [Suspect]
     Indication: PSORIASIS
     Dates: start: 20080513

REACTIONS (3)
  - CONDITION AGGRAVATED [None]
  - MYCOSIS FUNGOIDES [None]
  - PSORIASIS [None]
